FAERS Safety Report 22627087 (Version 1)
Quarter: 2023Q2

REPORT INFORMATION
  Report Type: Spontaneous
  Country: AU (occurrence: AU)
  Receive Date: 20230622
  Receipt Date: 20230622
  Transmission Date: 20230721
  Serious: Yes (Other)
  Sender: FDA-Public Use
  Company Number: AU-PFIZER INC-PV202300107670

PATIENT
  Age: 67 Year
  Sex: Male

DRUGS (2)
  1. ENBREL [Suspect]
     Active Substance: ETANERCEPT
     Indication: Product used for unknown indication
     Dosage: UNK
     Route: 065
     Dates: start: 20230602
  2. ENBREL [Suspect]
     Active Substance: ETANERCEPT
     Dosage: 3RD DOSE
     Route: 065
     Dates: start: 20230616

REACTIONS (1)
  - Rheumatoid arthritis [Unknown]
